FAERS Safety Report 8187185-9 (Version None)
Quarter: 2012Q1

REPORT INFORMATION
  Report Type: 
  Country: None (occurrence: None)
  Receive Date: 20120306
  Receipt Date: 20120301
  Transmission Date: 20120608
  Serious: Yes (Life-Threatening, Other)
  Sender: FDA-Public Use
  Company Number: US-BRACCO-007277

PATIENT
  Sex: Female

DRUGS (14)
  1. DOXAZOSIN MESYLATE [Concomitant]
  2. HYDRALAZINE HCL [Concomitant]
  3. IBUPROFEN TABLETS [Concomitant]
  4. AMLODIPINE [Concomitant]
  5. HYDROCHLOROTHIAZIDE [Concomitant]
  6. ISOVUE-370 [Suspect]
     Indication: ANGIOGRAM
     Route: 042
     Dates: start: 20111019, end: 20111019
  7. LORAZEPAM [Concomitant]
  8. OXYCODONE HCL [Concomitant]
  9. LISINOPRIL [Concomitant]
  10. VITAMINS                           /90003601/ [Concomitant]
  11. ISOVUE-370 [Suspect]
     Indication: AORTIC DISSECTION
     Route: 042
     Dates: start: 20111019, end: 20111019
  12. CARVEDILOL [Concomitant]
  13. LOSARTAN POTASSIUM [Concomitant]
  14. ASPIRIN [Concomitant]

REACTIONS (2)
  - CARDIO-RESPIRATORY ARREST [None]
  - ANAEMIA [None]
